FAERS Safety Report 24721538 (Version 1)
Quarter: 2024Q4

REPORT INFORMATION
  Report Type: Spontaneous
  Country: US (occurrence: None)
  Receive Date: 20241211
  Receipt Date: 20241211
  Transmission Date: 20250114
  Serious: Yes (Hospitalization)
  Sender: Public
  Company Number: None

PATIENT
  Age: 65 Year
  Sex: Male
  Weight: 79.3 kg

DRUGS (3)
  1. CARBOPLATIN [Suspect]
     Active Substance: CARBOPLATIN
  2. ERBITUX [Suspect]
     Active Substance: CETUXIMAB
  3. TAXOTERE [Suspect]
     Active Substance: DOCETAXEL

REACTIONS (3)
  - Diarrhoea [None]
  - Laryngeal haemorrhage [None]
  - Fatigue [None]

NARRATIVE: CASE EVENT DATE: 20240308
